APPROVED DRUG PRODUCT: PRIMACOR IN DEXTROSE 5% IN PLASTIC CONTAINER
Active Ingredient: MILRINONE LACTATE
Strength: EQ 10MG BASE/100ML **Federal Register determination that product was not discontinued or withdrawn for safety or effectiveness reasons**
Dosage Form/Route: INJECTABLE;INJECTION
Application: N020343 | Product #001
Applicant: SANOFI AVENTIS US LLC
Approved: Aug 9, 1994 | RLD: Yes | RS: No | Type: DISCN